FAERS Safety Report 14218020 (Version 1)
Quarter: 2017Q4

REPORT INFORMATION
  Report Type: Spontaneous
  Country: US (occurrence: US)
  Receive Date: 20171123
  Receipt Date: 20171123
  Transmission Date: 20180321
  Serious: No
  Sender: FDA-Public Use
  Company Number: US-TEVA-808192ACC

PATIENT
  Sex: Female
  Weight: 77.11 kg

DRUGS (1)
  1. GLIPIZIDE XL [Suspect]
     Active Substance: GLIPIZIDE
     Indication: DIABETES MELLITUS
     Dosage: 5 MILLIGRAM DAILY;
     Route: 048
     Dates: start: 201611, end: 20170226

REACTIONS (1)
  - Blood glucose increased [Recovering/Resolving]
